FAERS Safety Report 9861947 (Version 1)
Quarter: 2014Q1

REPORT INFORMATION
  Report Type: Report from Study
  Country: CA (occurrence: CA)
  Receive Date: 20140203
  Receipt Date: 20140203
  Transmission Date: 20141002
  Serious: Yes (Other)
  Sender: FDA-Public Use
  Company Number: CA-BRISTOL-MYERS SQUIBB COMPANY-20094843

PATIENT
  Age: 71 Year
  Sex: Female

DRUGS (6)
  1. ORENCIA [Suspect]
     Indication: RHEUMATOID ARTHRITIS
     Dosage: 1DF=500 UNIT NOS.
     Dates: start: 20130610
  2. CELEBREX [Concomitant]
  3. ACTONEL [Concomitant]
  4. PREDNISONE [Concomitant]
  5. CALCIUM [Concomitant]
  6. METHOTREXATE [Concomitant]

REACTIONS (2)
  - Cataract [Unknown]
  - Lens disorder [Unknown]
